FAERS Safety Report 12899038 (Version 1)
Quarter: 2016Q4

REPORT INFORMATION
  Report Type: Spontaneous
  Country: FR (occurrence: FR)
  Receive Date: 20161101
  Receipt Date: 20161101
  Transmission Date: 20170207
  Serious: Yes (Life-Threatening)
  Sender: FDA-Public Use
  Company Number: FR-ROCHE-1848054

PATIENT
  Age: 70 Year
  Sex: Female

DRUGS (14)
  1. CLIMASTON [Concomitant]
     Active Substance: ESTRADIOL\PROGESTERONE
  2. REMICADE [Suspect]
     Active Substance: INFLIXIMAB
     Indication: RHEUMATOID ARTHRITIS
     Route: 042
     Dates: start: 200709, end: 20140729
  3. TAREG [Concomitant]
     Active Substance: VALSARTAN
  4. INEXIUM [Concomitant]
     Active Substance: ESOMEPRAZOLE
  5. MABTHERA [Suspect]
     Active Substance: RITUXIMAB
     Indication: RHEUMATOID ARTHRITIS
     Dosage: CYCLE 1, DAY 1
     Route: 042
     Dates: start: 20151013
  6. MABTHERA [Suspect]
     Active Substance: RITUXIMAB
     Dosage: CYCLE 2 DAY 15
     Route: 042
     Dates: start: 20160512, end: 20160512
  7. ROACTEMRA [Suspect]
     Active Substance: TOCILIZUMAB
     Indication: RHEUMATOID ARTHRITIS
     Route: 042
     Dates: start: 20150326, end: 20150910
  8. ORENCIA [Suspect]
     Active Substance: ABATACEPT
     Indication: RHEUMATOID ARTHRITIS
     Route: 042
     Dates: start: 20140923, end: 20160226
  9. METHOTREXATE. [Suspect]
     Active Substance: METHOTREXATE
     Indication: RHEUMATOID ARTHRITIS
     Route: 048
     Dates: start: 201609
  10. SPECIAFOLDINE [Concomitant]
     Active Substance: FOLIC ACID
  11. LEVOTHYROX [Concomitant]
     Active Substance: LEVOTHYROXINE
  12. MABTHERA [Suspect]
     Active Substance: RITUXIMAB
     Dosage: CYCLE 2 DAY 1
     Route: 042
     Dates: start: 20160428
  13. MEDIATENSYL [Concomitant]
     Active Substance: URAPIDIL
  14. MABTHERA [Suspect]
     Active Substance: RITUXIMAB
     Dosage: CYCLE 1 DAY 15
     Route: 042
     Dates: start: 20151027

REACTIONS (1)
  - Glioblastoma [Not Recovered/Not Resolved]

NARRATIVE: CASE EVENT DATE: 201609
